FAERS Safety Report 10137659 (Version 1)
Quarter: 2014Q2

REPORT INFORMATION
  Report Type: Spontaneous
  Country: HR (occurrence: HR)
  Receive Date: 20140429
  Receipt Date: 20140429
  Transmission Date: 20141212
  Serious: Yes (Other)
  Sender: FDA-Public Use
  Company Number: PHHY2014HR044263

PATIENT
  Age: 80 Year
  Sex: Female

DRUGS (1)
  1. ONBREZ [Suspect]
     Indication: CHRONIC OBSTRUCTIVE PULMONARY DISEASE
     Dosage: 150 UG, UNK
     Route: 055
     Dates: start: 201402, end: 201402

REACTIONS (21)
  - Coronary artery disease [Unknown]
  - Pulmonary fibrosis [Unknown]
  - Lung hyperinflation [Unknown]
  - Lung infiltration [Unknown]
  - Chronic obstructive pulmonary disease [Unknown]
  - Angina pectoris [Unknown]
  - Chills [Unknown]
  - Osteoarthritis [Unknown]
  - Weight decreased [Unknown]
  - Sleep apnoea syndrome [Unknown]
  - Breath sounds abnormal [Unknown]
  - Antinuclear antibody positive [Unknown]
  - Red blood cell sedimentation rate increased [Unknown]
  - White blood cell count increased [Unknown]
  - C-reactive protein increased [Unknown]
  - Obstructive airways disorder [Unknown]
  - Pyrexia [Unknown]
  - Hyperhidrosis [Not Recovered/Not Resolved]
  - Cough [Unknown]
  - Rhinorrhoea [Not Recovered/Not Resolved]
  - Headache [Not Recovered/Not Resolved]
